FAERS Safety Report 17851560 (Version 4)
Quarter: 2020Q3

REPORT INFORMATION
  Report Type: Spontaneous
  Country: None (occurrence: US)
  Receive Date: 20200602
  Receipt Date: 20200903
  Transmission Date: 20201103
  Serious: No
  Sender: FDA-Public Use
  Company Number: US-GLAXOSMITHKLINE-US2020AMR090962

PATIENT
  Sex: Female

DRUGS (3)
  1. ZEJULA [Suspect]
     Active Substance: NIRAPARIB
     Indication: OVARIAN CANCER
     Dosage: 200 MG, QD
     Dates: start: 20200513
  2. ZEJULA [Suspect]
     Active Substance: NIRAPARIB
     Dosage: 200 MG, QD
     Route: 048
  3. ZEJULA [Suspect]
     Active Substance: NIRAPARIB
     Dosage: 200 MG, QD (AM)

REACTIONS (15)
  - Erythema [Unknown]
  - Pain [Unknown]
  - Constipation [Unknown]
  - Heart rate increased [Unknown]
  - Decreased appetite [Unknown]
  - Nausea [Unknown]
  - Gait disturbance [Unknown]
  - Headache [Recovered/Resolved]
  - Insomnia [Recovered/Resolved]
  - Hot flush [Unknown]
  - Oropharyngeal pain [Unknown]
  - Abdominal discomfort [Unknown]
  - Pain in extremity [Unknown]
  - Blood pressure increased [Unknown]
  - Arthralgia [Unknown]
